FAERS Safety Report 6868259-9 (Version None)
Quarter: 2010Q3

REPORT INFORMATION
  Report Type: 
  Country: None (occurrence: None)
  Receive Date: 20100722
  Receipt Date: 20080715
  Transmission Date: 20110219
  Serious: Yes (Other)
  Sender: FDA-Public Use
  Company Number: US-PFIZER INC-2008041966

PATIENT
  Sex: Female
  Weight: 109 kg

DRUGS (3)
  1. CHANTIX [Suspect]
     Indication: SMOKING CESSATION THERAPY
     Dates: start: 20080428
  2. KLONOPIN [Concomitant]
  3. DESOGESTREL AND ETHINYL ESTRADIOL [Concomitant]

REACTIONS (4)
  - FEELING JITTERY [None]
  - MOOD SWINGS [None]
  - NERVOUSNESS [None]
  - SUICIDAL IDEATION [None]
